FAERS Safety Report 5444481-3 (Version None)
Quarter: 2007Q3

REPORT INFORMATION
  Report Type: 
  Country: None (occurrence: None)
  Receive Date: 20070906
  Receipt Date: 20070827
  Transmission Date: 20080115
  Serious: Yes (Hospitalization, Other)
  Sender: FDA-Public Use
  Company Number: JP-JNJFOC-20070900428

PATIENT
  Sex: Male

DRUGS (11)
  1. LEVOFLOXACIN [Suspect]
     Indication: PULMONARY TUBERCULOSIS
     Route: 065
  2. LEVOFLOXACIN [Suspect]
     Route: 065
  3. ETHAMBUTOL HYDROCHLORIDE [Suspect]
     Route: 065
  4. ETHAMBUTOL HYDROCHLORIDE [Suspect]
     Indication: PULMONARY TUBERCULOSIS
     Route: 065
  5. ETHAMBUTOL HYDROCHLORIDE [Suspect]
     Route: 065
  6. ISCOTIN [Concomitant]
     Indication: PULMONARY TUBERCULOSIS
     Route: 065
  7. ISCOTIN [Concomitant]
     Route: 065
  8. PYRAMIDE [Concomitant]
     Indication: PULMONARY TUBERCULOSIS
     Route: 048
  9. PYRAMIDE [Concomitant]
     Route: 048
  10. RIFAMPICIN [Concomitant]
     Route: 065
  11. RIFAMPICIN [Concomitant]
     Route: 065

REACTIONS (4)
  - DRUG ERUPTION [None]
  - ILEUS PARALYTIC [None]
  - PRURITUS [None]
  - URINARY RETENTION [None]
